FAERS Safety Report 5520048-3 (Version None)
Quarter: 2007Q4

REPORT INFORMATION
  Report Type: 
  Country: None (occurrence: None)
  Receive Date: 20071116
  Receipt Date: 20071108
  Transmission Date: 20080405
  Serious: Yes (Hospitalization)
  Sender: FDA-Public Use
  Company Number: DE-ABBOTT-07P-062-0419931-00

PATIENT
  Sex: Male
  Weight: 75 kg

DRUGS (7)
  1. HUMIRA [Suspect]
     Indication: ANKYLOSING SPONDYLITIS
     Route: 058
     Dates: start: 20070801, end: 20070914
  2. PREDNISOLONE [Concomitant]
     Indication: ANKYLOSING SPONDYLITIS
     Route: 048
  3. CA 2+ [Concomitant]
     Indication: OSTEOPOROSIS PROPHYLAXIS
  4. ETORICOXIB [Concomitant]
     Indication: ANKYLOSING SPONDYLITIS
     Route: 048
  5. PANTOPRAZOLE SODIUM [Concomitant]
     Indication: DRUG USE FOR UNKNOWN INDICATION
     Route: 048
  6. TRAMADOL HCL [Concomitant]
     Indication: ANKYLOSING SPONDYLITIS
     Route: 048
  7. HYDROCHLOROTHIAZIDE [Concomitant]
     Indication: DRUG USE FOR UNKNOWN INDICATION
     Route: 048

REACTIONS (4)
  - ANKYLOSING SPONDYLITIS [None]
  - CHOLECYSTITIS [None]
  - PANCREATITIS [None]
  - PUSTULAR PSORIASIS [None]
